FAERS Safety Report 5579110-1 (Version None)
Quarter: 2008Q1

REPORT INFORMATION
  Report Type: 
  Country: None (occurrence: None)
  Receive Date: 20080102
  Receipt Date: 20071218
  Transmission Date: 20080703
  Serious: Yes (Other)
  Sender: FDA-Public Use
  Company Number: US-AMGEN-QUU257472

PATIENT
  Sex: Female

DRUGS (1)
  1. ENBREL [Suspect]
     Indication: RHEUMATOID ARTHRITIS
     Route: 058
     Dates: start: 20040924

REACTIONS (6)
  - BACK PAIN [None]
  - FATIGUE [None]
  - FOOT FRACTURE [None]
  - NEUROPATHY PERIPHERAL [None]
  - RESPIRATORY TRACT CONGESTION [None]
  - SNEEZING [None]
